FAERS Safety Report 5524345-7 (Version None)
Quarter: 2007Q4

REPORT INFORMATION
  Report Type: 
  Country: None (occurrence: None)
  Receive Date: 20071121
  Receipt Date: 20071109
  Transmission Date: 20080405
  Serious: Yes (Other)
  Sender: FDA-Public Use
  Company Number: JP-PFIZER INC-2007095830

PATIENT
  Age: 40 Year
  Sex: Male
  Weight: 61 kg

DRUGS (2)
  1. CORTRIL (TABS) [Suspect]
     Indication: HYPOPITUITARISM
     Dosage: DAILY DOSE:20MG
     Route: 048
  2. LEVOTHYROXINE SODIUM [Suspect]
     Indication: HYPOPITUITARISM
     Dosage: DAILY DOSE:50MCG

REACTIONS (1)
  - CENTRAL PONTINE MYELINOLYSIS [None]
